FAERS Safety Report 8777303 (Version 1)
Quarter: 2012Q4

REPORT INFORMATION
  Report Type: Report from Study
  Country: US (occurrence: US)
  Receive Date: 20120911
  Receipt Date: 20120911
  Transmission Date: 20130627
  Serious: Yes (Hospitalization, Other)
  Sender: FDA-Public Use
  Company Number: US-ABBOTT-12P-163-0977207-00

PATIENT
  Age: 38 None
  Sex: Female
  Weight: 63.56 kg

DRUGS (2)
  1. HUMIRA [Suspect]
     Indication: CROHN^S DISEASE
     Route: 058
     Dates: start: 2010, end: 201112
  2. PREDNISONE [Suspect]
     Indication: CROHN^S DISEASE
     Dates: start: 201011, end: 20110621

REACTIONS (2)
  - Gestational hypertension [Recovered/Resolved]
  - Crohn^s disease [Recovered/Resolved]
